FAERS Safety Report 5895686-9 (Version None)
Quarter: 2008Q3

REPORT INFORMATION
  Report Type: 
  Country: None (occurrence: None)
  Receive Date: 20080924
  Receipt Date: 20071106
  Transmission Date: 20090109
  Serious: Yes (Disabling)
  Sender: FDA-Public Use
  Company Number: US-BAYER-200713226BWH

PATIENT
  Sex: Male

DRUGS (2)
  1. CIPRO [Suspect]
     Indication: URINARY TRACT INFECTION
     Route: 048
  2. IBUPROFEN [Suspect]
     Indication: ARTHROPATHY

REACTIONS (3)
  - ABASIA [None]
  - ARTHROPATHY [None]
  - GOUT [None]
